FAERS Safety Report 13321787 (Version 2)
Quarter: 2017Q2

REPORT INFORMATION
  Report Type: Report from Study
  Country: US (occurrence: US)
  Receive Date: 20170310
  Receipt Date: 20170412
  Transmission Date: 20170830
  Serious: Yes (Hospitalization, Other)
  Sender: FDA-Public Use
  Company Number: US-CORCEPT THERAPEUTICS INC.-US-2017CRT000159

PATIENT

DRUGS (2)
  1. KORLYM [Suspect]
     Active Substance: MIFEPRISTONE
     Indication: ADRENAL NEOPLASM
     Dosage: 300 MG, QD
     Route: 048
     Dates: start: 201511, end: 201702
  2. KORLYM [Suspect]
     Active Substance: MIFEPRISTONE
     Indication: CUSHING^S SYNDROME

REACTIONS (5)
  - Facial paralysis [Unknown]
  - Pyrexia [Not Recovered/Not Resolved]
  - Reproductive tract disorder [Recovering/Resolving]
  - Dehydration [Unknown]
  - Vomiting [Unknown]

NARRATIVE: CASE EVENT DATE: 20170222
